FAERS Safety Report 23959933 (Version 1)
Quarter: 2024Q2

REPORT INFORMATION
  Report Type: Spontaneous
  Country: US (occurrence: US)
  Receive Date: 20240611
  Receipt Date: 20240611
  Transmission Date: 20240716
  Serious: Yes (Death, Other)
  Sender: FDA-Public Use
  Company Number: US-ICU MEDICAL, INC.-ICU2024US00013

PATIENT

DRUGS (8)
  1. SODIUM CHLORIDE [Suspect]
     Active Substance: SODIUM CHLORIDE
     Indication: Medication dilution
     Dosage: 200ML, AT THE RATE OF 150MCG/HR
     Route: 042
     Dates: start: 20240319
  2. FENTANYL [Suspect]
     Active Substance: FENTANYL\FENTANYL CITRATE
     Indication: Product used for unknown indication
     Dosage: 2000 MICROGRAM
     Route: 042
     Dates: start: 20240319, end: 20240319
  3. DEXMEDETOMIDINE [Suspect]
     Active Substance: DEXMEDETOMIDINE
     Indication: Product used for unknown indication
     Dosage: 400 MCG/ML
     Route: 042
     Dates: start: 20240319, end: 20240319
  4. KETAMINE [Suspect]
     Active Substance: KETAMINE
     Indication: Product used for unknown indication
     Dosage: 250MG/NSS 250 ML
     Route: 042
     Dates: start: 20240319, end: 20240319
  5. SODIUM CHLORIDE [Suspect]
     Active Substance: SODIUM CHLORIDE
     Indication: Medication dilution
     Dosage: 250 MILLILITER
     Route: 042
     Dates: start: 20240319, end: 20240319
  6. NOREPINEPHRINE [Suspect]
     Active Substance: NOREPINEPHRINE\NOREPINEPHRINE BITARTRATE
     Indication: Product used for unknown indication
     Dosage: 16 MILLIGRAM
     Route: 042
     Dates: start: 20240319, end: 20240319
  7. AMIODARONE [Suspect]
     Active Substance: AMIODARONE
     Indication: Product used for unknown indication
     Dosage: 360MG/200ML
     Route: 042
     Dates: start: 20240319, end: 20240319
  8. ARGATROBAN [Suspect]
     Active Substance: ARGATROBAN
     Indication: Product used for unknown indication
     Dosage: 50 MG/50 ML
     Route: 042
     Dates: start: 20240319, end: 20240319

REACTIONS (3)
  - Death [Fatal]
  - Ventricular tachycardia [Fatal]
  - Device infusion issue [Unknown]

NARRATIVE: CASE EVENT DATE: 20240319
